FAERS Safety Report 17969947 (Version 2)
Quarter: 2020Q3

REPORT INFORMATION
  Report Type: Spontaneous
  Country: GB (occurrence: GB)
  Receive Date: 20200701
  Receipt Date: 20200707
  Transmission Date: 20201103
  Serious: Yes (Life-Threatening, Hospitalization, Other)
  Sender: FDA-Public Use
  Company Number: NVSC2020GB180752

PATIENT
  Age: 34 Year
  Sex: Female
  Weight: 70 kg

DRUGS (10)
  1. SODIUM CHLORIDE. [Suspect]
     Active Substance: SODIUM CHLORIDE
     Indication: PRODUCT USED FOR UNKNOWN INDICATION
     Dosage: UNK
     Route: 065
  2. GELCLAIR [Concomitant]
     Indication: MUCOSAL INFLAMMATION
     Dosage: UNK, PRN
     Route: 065
     Dates: start: 20200507
  3. PARACETAMOL [Concomitant]
     Active Substance: ACETAMINOPHEN
     Indication: PAIN
     Dosage: 4 G, QD (4X/DAY PRN)
     Route: 065
     Dates: start: 20200507
  4. TINZAPARIN [Concomitant]
     Active Substance: TINZAPARIN
     Indication: DEEP VEIN THROMBOSIS
     Dosage: 1200 OT, QD
     Route: 065
     Dates: start: 20200208
  5. CITALOPRAM [Concomitant]
     Active Substance: CITALOPRAM HYDROBROMIDE
     Indication: DEPRESSION
     Dosage: 20 MG, QD
     Route: 065
     Dates: start: 20200410
  6. MORPHINE [Concomitant]
     Active Substance: MORPHINE
     Indication: PAIN
     Dosage: 10 MG, PRN
     Route: 065
     Dates: start: 20200507
  7. OXETACAINE [Concomitant]
     Active Substance: OXETHAZAINE
     Indication: MUCOSAL INFLAMMATION
     Dosage: PRN
     Route: 065
     Dates: start: 20200507
  8. METHOTREXATE SODIUM. [Suspect]
     Active Substance: METHOTREXATE SODIUM
     Indication: PRODUCT USED FOR UNKNOWN INDICATION
     Dosage: 21500 MG, (EVERY 5 WEEKS, 4 HOUR INFUSION; TOTAL CHEMO CYCLE LENGTH = 4 DAYS)
     Route: 065
     Dates: start: 20200504
  9. METHOTREXATE SODIUM. [Suspect]
     Active Substance: METHOTREXATE SODIUM
     Dosage: 23900 MG (IN 1000 ML NACL)
     Route: 065
  10. DIFFLAM [Concomitant]
     Active Substance: BENZYDAMINE HYDROCHLORIDE
     Indication: MUCOSAL INFLAMMATION
     Dosage: UNK, PRN
     Route: 065
     Dates: start: 20200507

REACTIONS (5)
  - Visual impairment [Unknown]
  - Intracranial pressure increased [Unknown]
  - Headache [Unknown]
  - Intraocular pressure increased [Unknown]
  - Leukoencephalopathy [Recovering/Resolving]

NARRATIVE: CASE EVENT DATE: 20200507
